FAERS Safety Report 9392196 (Version 2)
Quarter: 2013Q3

REPORT INFORMATION
  Report Type: Spontaneous
  Country: US (occurrence: US)
  Receive Date: 20130710
  Receipt Date: 20130726
  Transmission Date: 20140515
  Serious: No
  Sender: FDA-Public Use
  Company Number: US-B.I. PHARMACEUTICALS,INC./RIDGEFIELD-2013-BI-19452BP

PATIENT
  Sex: Female
  Weight: 52 kg

DRUGS (7)
  1. COMBIVENT [Suspect]
     Indication: CHRONIC OBSTRUCTIVE PULMONARY DISEASE
     Dosage: STRENGTH: 20 MCG / 100 MCG; DAILY DOSE: 80MG/400MG
     Route: 055
     Dates: start: 201306
  2. COMBIVENT [Suspect]
     Indication: CHRONIC OBSTRUCTIVE PULMONARY DISEASE
     Dosage: STRENGTH- 18MCG/103MG, DAILY DOSE- 144MCG/824MG
     Route: 055
     Dates: start: 2003, end: 201306
  3. QVAR [Concomitant]
     Indication: CHRONIC OBSTRUCTIVE PULMONARY DISEASE
     Dosage: 2 PUF
     Route: 055
  4. HCTZ [Concomitant]
     Indication: OEDEMA PERIPHERAL
     Dosage: 25 MG
     Route: 048
  5. AVAPRO [Concomitant]
     Indication: HYPERTENSION
     Dosage: 150 MG
     Route: 048
  6. OMEPRAZOLE [Concomitant]
     Indication: GASTROOESOPHAGEAL REFLUX DISEASE
     Dosage: 20 MG
     Route: 048
  7. OMEPRAZOLE [Concomitant]
     Indication: ABDOMINAL DISCOMFORT

REACTIONS (6)
  - Choking [Not Recovered/Not Resolved]
  - Poor peripheral circulation [Not Recovered/Not Resolved]
  - Oedema peripheral [Not Recovered/Not Resolved]
  - Local swelling [Not Recovered/Not Resolved]
  - Localised infection [Not Recovered/Not Resolved]
  - Pain in extremity [Not Recovered/Not Resolved]
